FAERS Safety Report 4304311-X (Version None)
Quarter: 2004Q1

REPORT INFORMATION
  Report Type: 
  Country: None (occurrence: None)
  Receive Date: 20040224
  Receipt Date: 20040212
  Transmission Date: 20041129
  Serious: Yes (Other)
  Sender: FDA-Public Use
  Company Number: 200400988

PATIENT
  Age: 7 Year
  Sex: Female

DRUGS (1)
  1. BOTOX [Suspect]
     Indication: MUSCLE SPASTICITY
     Dosage: 200 UNITS PRN IM
     Route: 030
     Dates: start: 20020501

REACTIONS (3)
  - CONVULSION [None]
  - VIRAL INFECTION [None]
  - VOMITING [None]
